FAERS Safety Report 7060530-3 (Version None)
Quarter: 2010Q4

REPORT INFORMATION
  Report Type: 
  Country: None (occurrence: None)
  Receive Date: 20101025
  Receipt Date: 20101012
  Transmission Date: 20110411
  Serious: Yes (Hospitalization, Other)
  Sender: FDA-Public Use
  Company Number: US-ELI_LILLY_AND_COMPANY-US201009002478

PATIENT
  Sex: Female
  Weight: 44.444 kg

DRUGS (5)
  1. FORTEO [Suspect]
     Indication: OSTEOPOROSIS
     Dosage: 20 UG, DAILY (1/D)
     Dates: start: 20090312
  2. PREDNISONE [Concomitant]
     Indication: ILEITIS
     Dosage: 15 MG, DAILY (1/D)
  3. LOMOTIL [Concomitant]
  4. INDERAL [Concomitant]
     Indication: TACHYCARDIA
     Dosage: 60 MG, DAILY (1/D)
  5. MERCAPTOPURINE [Concomitant]
     Indication: ILEITIS
     Dosage: 50 MG, DAILY (1/D)

REACTIONS (3)
  - AMNESIA [None]
  - CARDIAC DISORDER [None]
  - CAROTID ARTERY DISEASE [None]
